FAERS Safety Report 25670642 (Version 1)
Quarter: 2025Q3

REPORT INFORMATION
  Report Type: Spontaneous
  Country: US (occurrence: US)
  Receive Date: 20250812
  Receipt Date: 20250812
  Transmission Date: 20251021
  Serious: Yes (Life-Threatening, Hospitalization)
  Sender: MYLAN
  Company Number: US-MYLANLABS-2025M1066869

PATIENT
  Age: 65 Year
  Sex: Female

DRUGS (12)
  1. LEVETIRACETAM [Suspect]
     Active Substance: LEVETIRACETAM
     Indication: Status epilepticus
  2. LEVETIRACETAM [Suspect]
     Active Substance: LEVETIRACETAM
     Route: 065
  3. LEVETIRACETAM [Suspect]
     Active Substance: LEVETIRACETAM
     Route: 065
  4. LEVETIRACETAM [Suspect]
     Active Substance: LEVETIRACETAM
  5. VALPROIC ACID [Suspect]
     Active Substance: VALPROIC ACID
     Indication: Status epilepticus
  6. VALPROIC ACID [Suspect]
     Active Substance: VALPROIC ACID
     Route: 065
  7. VALPROIC ACID [Suspect]
     Active Substance: VALPROIC ACID
     Route: 065
  8. VALPROIC ACID [Suspect]
     Active Substance: VALPROIC ACID
  9. LORAZEPAM [Suspect]
     Active Substance: LORAZEPAM
     Indication: Status epilepticus
  10. LORAZEPAM [Suspect]
     Active Substance: LORAZEPAM
     Route: 065
  11. LORAZEPAM [Suspect]
     Active Substance: LORAZEPAM
     Route: 065
  12. LORAZEPAM [Suspect]
     Active Substance: LORAZEPAM

REACTIONS (1)
  - Drug ineffective [Unknown]
